FAERS Safety Report 20015663 (Version 1)
Quarter: 2021Q4

REPORT INFORMATION
  Report Type: Spontaneous
  Country: US (occurrence: None)
  Receive Date: 20211101
  Receipt Date: 20211101
  Transmission Date: 20220303
  Serious: Yes (Other)
  Sender: FDA-Public Use
  Company Number: None

PATIENT
  Age: 73 Year
  Sex: Female
  Weight: 76.5 kg

DRUGS (9)
  1. REGEN-COV [Suspect]
     Active Substance: CASIRIVIMAB\IMDEVIMAB
     Indication: COVID-19
     Dosage: OTHER FREQUENCY : 1 TIME- @ A CLINIC;?
     Route: 058
     Dates: start: 20211006, end: 20211006
  2. Xeralto 20 mg qd [Concomitant]
  3. Citalopram 20 mg qd [Concomitant]
  4. Levothyroxine 75 mcg qd [Concomitant]
  5. Vitamin B12 5000 mcg sublingual qd [Concomitant]
  6. Vitamin D3 5000 IU qd [Concomitant]
  7. Vitamin E [Concomitant]
  8. VITAMINS [Concomitant]
     Active Substance: VITAMINS
  9. TYLENOL [Concomitant]
     Active Substance: ACETAMINOPHEN

REACTIONS (9)
  - Syncope [None]
  - Foot fracture [None]
  - Feeling abnormal [None]
  - Amnesia [None]
  - Asthenia [None]
  - Confusional state [None]
  - Fall [None]
  - Memory impairment [None]
  - Fatigue [None]

NARRATIVE: CASE EVENT DATE: 20211007
